FAERS Safety Report 12959684 (Version 1)
Quarter: 2016Q4

REPORT INFORMATION
  Report Type: Spontaneous
  Country: US (occurrence: US)
  Receive Date: 20161121
  Receipt Date: 20161121
  Transmission Date: 20170207
  Serious: No
  Sender: FDA-Public Use
  Company Number: US-JNJFOC-20161006222

PATIENT
  Age: 76 Year
  Sex: Female
  Weight: 58.51 kg

DRUGS (4)
  1. TYLENOL EXTRA STRENGTH [Suspect]
     Active Substance: ACETAMINOPHEN
     Indication: PYREXIA
     Dosage: 1 CAPLET TAKEN IN THE AM, 1 CAPLET TAKEN AT NOON AND 2 CAPLETS TAKEN IN THE??PM
     Route: 048
     Dates: start: 20161001
  2. TYLENOL EXTRA STRENGTH [Suspect]
     Active Substance: ACETAMINOPHEN
     Indication: HEADACHE
     Dosage: 1 CAPLET TAKEN IN THE AM, 1 CAPLET TAKEN AT NOON AND 2 CAPLETS TAKEN IN THE??PM
     Route: 048
     Dates: start: 20161001
  3. TYLENOL EXTRA STRENGTH [Suspect]
     Active Substance: ACETAMINOPHEN
     Indication: OROPHARYNGEAL PAIN
     Dosage: 1 CAPLET TAKEN IN THE AM, 1 CAPLET TAKEN AT NOON AND 2 CAPLETS TAKEN IN THE??PM
     Route: 048
     Dates: start: 20161001
  4. TYLENOL EXTRA STRENGTH [Suspect]
     Active Substance: ACETAMINOPHEN
     Indication: NASOPHARYNGITIS
     Dosage: 1 CAPLET TAKEN IN THE AM, 1 CAPLET TAKEN AT NOON AND 2 CAPLETS TAKEN IN THE??PM
     Route: 048
     Dates: start: 20161001

REACTIONS (2)
  - Drug ineffective [Unknown]
  - Intentional underdose [Unknown]

NARRATIVE: CASE EVENT DATE: 201610
